FAERS Safety Report 8094944-X (Version None)
Quarter: 2012Q1

REPORT INFORMATION
  Report Type: 
  Country: None (occurrence: None)
  Receive Date: 20120125
  Receipt Date: 20120116
  Transmission Date: 20120608
  Serious: Yes (Hospitalization, Other)
  Sender: FDA-Public Use
  Company Number: 2012SP002990

PATIENT
  Age: 79 Year
  Sex: Male
  Weight: 92 kg

DRUGS (10)
  1. ASPIRIN [Concomitant]
  2. ISOSORBIDE MONONITRATE [Concomitant]
  3. VELCADE [Suspect]
     Indication: GLIOBLASTOMA
     Dosage: 2.6 MG;IV
     Route: 042
     Dates: start: 20090501, end: 20090504
  4. DEXAMETHASONE TAB [Suspect]
     Indication: GLIOBLASTOMA
     Dosage: 20 MG;PO
     Route: 048
     Dates: start: 20090410, end: 20090421
  5. DEXAMETHASONE TAB [Suspect]
     Indication: GLIOBLASTOMA
     Dosage: 20 MG;PO
     Route: 048
     Dates: start: 20090501, end: 20090505
  6. PREDNISONE TAB [Concomitant]
  7. SIMAVASTATIN [Concomitant]
  8. RAMIPRIL [Concomitant]
  9. PERSANTIN [Concomitant]
  10. DOMPERIDONE [Concomitant]

REACTIONS (1)
  - ORTHOSTATIC HYPOTENSION [None]
